FAERS Safety Report 20116437 (Version 5)
Quarter: 2022Q1

REPORT INFORMATION
  Report Type: Spontaneous
  Country: US (occurrence: US)
  Receive Date: 20211126
  Receipt Date: 20220309
  Transmission Date: 20220423
  Serious: Yes (Hospitalization)
  Sender: FDA-Public Use
  Company Number: US-Global Blood Therapeutics Inc-US-GBT-21-04209

PATIENT
  Sex: Female

DRUGS (7)
  1. OXBRYTA [Suspect]
     Active Substance: VOXELOTOR
     Indication: Sickle cell disease
     Route: 048
     Dates: start: 20210703
  2. ELIQUIS [Concomitant]
     Active Substance: APIXABAN
     Indication: Deep vein thrombosis
  3. NORCO [Concomitant]
     Active Substance: ACETAMINOPHEN\HYDROCODONE BITARTRATE
     Indication: Sickle cell anaemia with crisis
     Dosage: 10-325 MG
  4. ENDARI [Concomitant]
     Active Substance: GLUTAMINE
     Indication: Sickle cell disease
  5. ALBUTEROL [Concomitant]
     Active Substance: ALBUTEROL
     Indication: Asthma
  6. ALBUTEROL [Concomitant]
     Active Substance: ALBUTEROL
     Indication: Dyspnoea
  7. VITAMIN D [Concomitant]
     Active Substance: VITAMIN D NOS
     Indication: Vitamin D deficiency

REACTIONS (4)
  - Sickle cell anaemia with crisis [Recovered/Resolved]
  - Sickle cell anaemia with crisis [Recovered/Resolved]
  - Sickle cell anaemia with crisis [Recovered/Resolved]
  - Expired product administered [Unknown]

NARRATIVE: CASE EVENT DATE: 20210101
